FAERS Safety Report 4777545-8 (Version None)
Quarter: 2005Q3

REPORT INFORMATION
  Report Type: 
  Country: None (occurrence: None)
  Receive Date: 20050921
  Receipt Date: 20050909
  Transmission Date: 20060218
  Serious: Yes (Hospitalization, Other)
  Sender: FDA-Public Use
  Company Number: 2005124248

PATIENT
  Age: 45 Year
  Sex: Female

DRUGS (4)
  1. ZYVOX [Suspect]
     Indication: CELLULITIS
     Dosage: 1200 MG (600 MG, BID INTERVAL: EVERY DAY), INTRAVENOUS
     Route: 042
     Dates: start: 20050801
  2. ZYVOX [Suspect]
     Indication: CELLULITIS
     Dosage: 1200 MG (600 MG, BID), ORAL
     Route: 048
     Dates: end: 20050901
  3. ANTI-INFLAMMATORY NOS (ALL OTHER THERAPEUTIC PRODUCTS) [Concomitant]
  4. OPIOD (OPIODS) [Concomitant]

REACTIONS (1)
  - CONVULSION [None]
